FAERS Safety Report 23884000 (Version 1)
Quarter: 2024Q2

REPORT INFORMATION
  Report Type: Spontaneous
  Country: US (occurrence: None)
  Receive Date: 20240521
  Receipt Date: 20240521
  Transmission Date: 20240716
  Serious: Yes (Other)
  Sender: FDA-Public Use
  Company Number: None

PATIENT
  Age: 21 Year
  Sex: Female
  Weight: 45.9 kg

DRUGS (2)
  1. GAMUNEX-C [Suspect]
     Active Substance: HUMAN IMMUNOGLOBULIN G
     Indication: Autonomic nervous system imbalance
     Dosage: OTHER FREQUENCY : Q3 WEEKS;?
     Route: 041
     Dates: start: 20240506, end: 20240507
  2. GAMUNEX-C [Suspect]
     Active Substance: HUMAN IMMUNOGLOBULIN G
     Indication: Autonomic nervous system imbalance
     Dosage: OTHER FREQUENCY : Q3WEEKS;?
     Route: 042
     Dates: start: 20240506, end: 20240507

REACTIONS (8)
  - Headache [None]
  - Pyrexia [None]
  - Musculoskeletal stiffness [None]
  - Nausea [None]
  - Vomiting [None]
  - Hypersomnia [None]
  - Hyperacusis [None]
  - Photophobia [None]

NARRATIVE: CASE EVENT DATE: 20240507
